FAERS Safety Report 10592501 (Version 2)
Quarter: 2014Q4

REPORT INFORMATION
  Report Type: Spontaneous
  Country: DE (occurrence: DE)
  Receive Date: 20141119
  Receipt Date: 20141219
  Transmission Date: 20150529
  Serious: Yes (Hospitalization, Other)
  Sender: FDA-Public Use
  Company Number: PHHY2014DE148857

PATIENT
  Age: 72 Year
  Sex: Female

DRUGS (6)
  1. ACOLON//DEXAMETHASONE [Concomitant]
     Indication: PLASMA CELL MYELOMA
     Route: 048
     Dates: start: 201207, end: 201211
  2. BORTEZOMIB [Concomitant]
     Active Substance: BORTEZOMIB
     Indication: PLASMA CELL MYELOMA
     Route: 058
     Dates: start: 201207, end: 201211
  3. CYCLOPHOSPHAMIDE. [Concomitant]
     Active Substance: CYCLOPHOSPHAMIDE
     Indication: PLASMA CELL MYELOMA
     Dosage: 50 MG, UNK
     Route: 048
     Dates: start: 201204, end: 201211
  4. PREDNISOLONE. [Concomitant]
     Active Substance: PREDNISOLONE
     Indication: PLASMA CELL MYELOMA
     Dosage: BODY SURFACE AREA /100 MG
     Route: 048
     Dates: start: 201401, end: 201406
  5. ZOMETA [Suspect]
     Active Substance: ZOLEDRONIC ACID
     Indication: PLASMACYTOMA
     Dosage: 3 MG, QMO
     Route: 042
     Dates: start: 201211
  6. BENDAMUSTINA [Concomitant]
     Active Substance: BENDAMUSTINE
     Indication: PLASMA CELL MYELOMA
     Dosage: 67 MG/M2, UNK
     Route: 041
     Dates: start: 201401, end: 201406

REACTIONS (2)
  - Feeding disorder [Unknown]
  - Osteonecrosis of jaw [Unknown]

NARRATIVE: CASE EVENT DATE: 201411
